FAERS Safety Report 12120937 (Version 1)
Quarter: 2016Q1

REPORT INFORMATION
  Report Type: Spontaneous
  Country: US (occurrence: US)
  Receive Date: 20160226
  Receipt Date: 20160226
  Transmission Date: 20160526
  Serious: No
  Sender: FDA-Public Use
  Company Number: US-ALLERGAN-1204004US

PATIENT
  Age: 68 Year
  Sex: Female

DRUGS (3)
  1. GENTLE GEL [Concomitant]
     Indication: DRY EYE
     Dosage: UNK
     Route: 047
  2. EQUATE                             /00002701/ [Concomitant]
     Indication: DRY EYE
     Dosage: 1-3 TIMES DAILY
     Route: 047
  3. REFRESH OPTIVE SENSITIVE [Suspect]
     Active Substance: CARBOXYMETHYLCELLULOSE SODIUM\GLYCERIN
     Indication: DRY EYE
     Dosage: UNK
     Route: 047
     Dates: start: 20120227

REACTIONS (1)
  - Pain of skin [Recovered/Resolved]
